FAERS Safety Report 15887725 (Version 10)
Quarter: 2020Q2

REPORT INFORMATION
  Report Type: Report from Study
  Country: IL (occurrence: IL)
  Receive Date: 20190130
  Receipt Date: 20200417
  Transmission Date: 20200713
  Serious: Yes (Hospitalization, Other)
  Sender: FDA-Public Use
  Company Number: IL-AMGEN-ISRSL2019007382

PATIENT
  Age: 74 Year
  Sex: Female

DRUGS (15)
  1. NPLATE [Suspect]
     Active Substance: ROMIPLOSTIM
     Dosage: 500 MICROGRAM, Q2WK
     Route: 058
  2. ENALAPRIL [Concomitant]
     Active Substance: ENALAPRIL
     Dosage: 5 MILLIGRAM, QD
  3. NPLATE [Suspect]
     Active Substance: ROMIPLOSTIM
     Dosage: 250 MICROGRAM, QWK
     Route: 058
     Dates: start: 20130526
  4. ENALADEX [Concomitant]
     Active Substance: ENALAPRIL MALEATE
     Dosage: 5 MILLIGRAM, BID
     Route: 048
  5. NPLATE [Suspect]
     Active Substance: ROMIPLOSTIM
     Dosage: UNK
     Route: 058
  6. ZALDIAR [Concomitant]
     Active Substance: ACETAMINOPHEN\TRAMADOL HYDROCHLORIDE
     Dosage: 37.5/325 MILLIGRAM, QD
     Route: 048
  7. OMEPRADEX [Concomitant]
     Active Substance: OMEPRAZOLE
     Dosage: 20 MILLIGRAM, QD
  8. SIMVACOR [Concomitant]
     Active Substance: SIMVASTATIN
     Dosage: 40 MILLIGRAM, QD
  9. BONDORMIN [Concomitant]
     Active Substance: BROTIZOLAM
     Dosage: 0.25 MILLIGRAM, QD
  10. NPLATE [Suspect]
     Active Substance: ROMIPLOSTIM
     Indication: IMMUNE THROMBOCYTOPENIA
     Dosage: 500 MICROGRAM, QWK
     Route: 058
     Dates: start: 2011, end: 2011
  11. NPLATE [Suspect]
     Active Substance: ROMIPLOSTIM
     Dosage: UNK
     Route: 065
     Dates: start: 201910
  12. OMEPRADEX [Concomitant]
     Active Substance: OMEPRAZOLE
     Dosage: 20 MILLIGRAM, BID
     Route: 048
  13. SIMVACOR [Concomitant]
     Active Substance: SIMVASTATIN
     Dosage: 20 MILLIGRAM, BID
     Route: 048
  14. GLUCOMIN [Concomitant]
     Active Substance: METFORMIN HYDROCHLORIDE
     Dosage: 850 MILLIGRAM, QOD
  15. NPLATE [Suspect]
     Active Substance: ROMIPLOSTIM
     Dosage: 500 MICROGRAM, QWK
     Route: 058
     Dates: start: 20190218

REACTIONS (19)
  - Pulmonary embolism [Unknown]
  - Abdominal pain [Recovering/Resolving]
  - Thrombocytopenia [Recovered/Resolved]
  - Skin irritation [Unknown]
  - Blood glucose abnormal [Unknown]
  - Psychomotor hyperactivity [Unknown]
  - Nasal congestion [Unknown]
  - Cough [Unknown]
  - Dementia [Unknown]
  - Dyspnoea [Unknown]
  - Diabetic ulcer [Unknown]
  - Viral infection [Unknown]
  - Blood disorder [Unknown]
  - Haematoma [Unknown]
  - Loss of consciousness [Recovered/Resolved]
  - Deep vein thrombosis [Unknown]
  - Haemoptysis [Unknown]
  - Fall [Unknown]
  - Hypertension [Recovered/Resolved]

NARRATIVE: CASE EVENT DATE: 2017
